FAERS Safety Report 9293478 (Version 2)
Quarter: 2013Q2

REPORT INFORMATION
  Report Type: Spontaneous
  Country: JP (occurrence: JP)
  Receive Date: 20130516
  Receipt Date: 20130528
  Transmission Date: 20140414
  Serious: Yes (Other)
  Sender: FDA-Public Use
  Company Number: JP-BAXTER-2013BAX017527

PATIENT
  Age: 62 Year
  Sex: Male
  Weight: 60 kg

DRUGS (5)
  1. ADVATE 1000 [Suspect]
     Indication: HIGH FREQUENCY ABLATION
     Route: 042
     Dates: start: 20130408, end: 20130408
  2. ADVATE 1000 [Suspect]
     Indication: FACTOR VIII DEFICIENCY
     Route: 042
     Dates: start: 20130409, end: 20130414
  3. ADVATE 1000 [Suspect]
     Route: 042
     Dates: start: 201304
  4. URSO [Concomitant]
     Indication: PRODUCT USED FOR UNKNOWN INDICATION
     Dosage: 2 (UNIT NOT REPORTED)
     Route: 048
  5. MUCOSTA [Concomitant]
     Indication: PRODUCT USED FOR UNKNOWN INDICATION
     Dosage: 1 (UNIT NOT REPORTED)
     Route: 048

REACTIONS (2)
  - Drug effect decreased [Recovered/Resolved]
  - Factor VIII inhibition [Unknown]
